FAERS Safety Report 16133931 (Version 10)
Quarter: 2020Q3

REPORT INFORMATION
  Report Type: Report from Study
  Country: AR (occurrence: AR)
  Receive Date: 20190329
  Receipt Date: 20200804
  Transmission Date: 20201102
  Serious: Yes (Hospitalization)
  Sender: FDA-Public Use
  Company Number: AR-ACTELION-A-CH2019-188008

PATIENT
  Age: 34 Year
  Sex: Female
  Weight: 50 kg

DRUGS (2)
  1. OPSUMIT [Concomitant]
     Active Substance: MACITENTAN
  2. VELETRI [Suspect]
     Active Substance: EPOPROSTENOL
     Indication: PULMONARY ARTERIAL HYPERTENSION
     Dosage: 1 NG/KG, PER MIN
     Route: 042
     Dates: start: 20170823

REACTIONS (8)
  - Device breakage [Unknown]
  - Incorrect dose administered [Unknown]
  - Medical device change [Unknown]
  - Hospitalisation [Unknown]
  - Catheter management [Unknown]
  - Device issue [Unknown]
  - Coronary angioplasty [Unknown]
  - Administration site haemorrhage [Recovering/Resolving]

NARRATIVE: CASE EVENT DATE: 20190318
